FAERS Safety Report 7366272-9 (Version None)
Quarter: 2011Q1

REPORT INFORMATION
  Report Type: 
  Country: None (occurrence: None)
  Receive Date: 20110317
  Receipt Date: 20110317
  Transmission Date: 20110831
  Serious: No
  Sender: FDA-Public Use
  Company Number: None

PATIENT
  Sex: Female
  Weight: 75.75 kg

DRUGS (5)
  1. CYCLOPHOSPHAMIDE [Suspect]
     Dosage: 1395 MG
  2. PREDNISONE [Suspect]
  3. DOXIL [Suspect]
     Dosage: 7.4 MG
  4. VINCRISTINE SULFATE [Suspect]
     Dosage: 2 MG
  5. RITUXIMAB (MOAB C2B8 ANTI CD20, CHIMERIC) [Suspect]
     Dosage: 698 MG

REACTIONS (1)
  - NEUTROPENIA [None]
